FAERS Safety Report 5314913-X (Version None)
Quarter: 2007Q2

REPORT INFORMATION
  Report Type: 
  Country: None (occurrence: None)
  Receive Date: 20070502
  Receipt Date: 20070423
  Transmission Date: 20071010
  Serious: Yes (Other)
  Sender: FDA-Public Use
  Company Number: FR-JNJFOC-20070405267

PATIENT
  Age: 79 Year
  Sex: Female

DRUGS (2)
  1. REMINYL [Suspect]
     Route: 048
  2. REMINYL [Suspect]
     Indication: VASCULAR DEMENTIA
     Route: 048

REACTIONS (1)
  - PERIPHERAL ISCHAEMIA [None]
